FAERS Safety Report 9801969 (Version 1)
Quarter: 2014Q1

REPORT INFORMATION
  Report Type: Spontaneous
  Country: GB (occurrence: GB)
  Receive Date: 20140107
  Receipt Date: 20140107
  Transmission Date: 20141002
  Serious: Yes (Hospitalization)
  Sender: FDA-Public Use
  Company Number: PHHY2014GB001028

PATIENT
  Age: 58 Year
  Sex: Female

DRUGS (3)
  1. PARACETAMOL [Suspect]
     Dosage: 16 DF, UNK
  2. PERSANTIN - SLOW RELEASE [Suspect]
     Dosage: 40 DF, UNK
  3. FLUOXETINE [Concomitant]
     Indication: DEPRESSION

REACTIONS (16)
  - Multi-organ failure [Unknown]
  - Cardiac arrest [Recovering/Resolving]
  - Pulseless electrical activity [Recovering/Resolving]
  - Intestinal ischaemia [Unknown]
  - Small intestinal obstruction [Unknown]
  - Coagulopathy [Unknown]
  - Hypokalaemia [Unknown]
  - Sinus tachycardia [Unknown]
  - Hypotension [Unknown]
  - Delirium [Unknown]
  - Dysphonia [Recovered/Resolved]
  - Renal failure acute [Recovered/Resolved]
  - Anuria [Unknown]
  - Metabolic acidosis [Unknown]
  - Liver function test abnormal [Unknown]
  - Overdose [Unknown]
